FAERS Safety Report 17679964 (Version 1)
Quarter: 2020Q2

REPORT INFORMATION
  Report Type: Spontaneous
  Country: US (occurrence: US)
  Receive Date: 20200417
  Receipt Date: 20200417
  Transmission Date: 20200714
  Serious: Yes (Hospitalization)
  Sender: FDA-Public Use
  Company Number: US-MYLANLABS-2020M1038671

PATIENT
  Age: 9 Day
  Sex: Male

DRUGS (5)
  1. LIDOCAINE. [Suspect]
     Active Substance: LIDOCAINE
     Indication: VENTRICULAR ARRHYTHMIA
     Route: 065
  2. PROCAINAMIDE [Suspect]
     Active Substance: PROCAINAMIDE HYDROCHLORIDE
     Indication: VENTRICULAR ARRHYTHMIA
     Route: 065
  3. ESMOLOL [Suspect]
     Active Substance: ESMOLOL HYDROCHLORIDE
     Indication: VENTRICULAR ARRHYTHMIA
     Route: 065
  4. AMIODARONE [Suspect]
     Active Substance: AMIODARONE
     Indication: VENTRICULAR ARRHYTHMIA
     Dosage: 15 MCG/KG/MIN
     Route: 042
  5. AMIODARONE [Suspect]
     Active Substance: AMIODARONE
     Dosage: 20 MCG/KG/MIN
     Route: 042

REACTIONS (1)
  - Drug ineffective [Unknown]
